FAERS Safety Report 15623044 (Version 9)
Quarter: 2021Q1

REPORT INFORMATION
  Report Type: Spontaneous
  Country: US (occurrence: US)
  Receive Date: 20181115
  Receipt Date: 20210219
  Transmission Date: 20210419
  Serious: Yes (Other)
  Sender: FDA-Public Use
  Company Number: US-PFIZER INC-2018460876

PATIENT
  Age: 70 Year
  Sex: Female
  Weight: 91 kg

DRUGS (1)
  1. LYRICA [Suspect]
     Active Substance: PREGABALIN
     Indication: NEUROPATHY PERIPHERAL
     Dosage: 75 MG, 3X/DAY
     Route: 048
     Dates: start: 2018

REACTIONS (11)
  - Upper limb fracture [Unknown]
  - Fall [Unknown]
  - Fatigue [Unknown]
  - Hypoaesthesia [Unknown]
  - Frustration tolerance decreased [Unknown]
  - Limb injury [Unknown]
  - Intentional product use issue [Unknown]
  - Pain [Unknown]
  - Burning sensation [Unknown]
  - Therapeutic product effect incomplete [Unknown]
  - Confusional state [Unknown]

NARRATIVE: CASE EVENT DATE: 2018
